FAERS Safety Report 21742258 (Version 1)
Quarter: 2022Q4

REPORT INFORMATION
  Report Type: Spontaneous
  Country: US (occurrence: None)
  Receive Date: 20221216
  Receipt Date: 20221216
  Transmission Date: 20230113
  Serious: Yes (Hospitalization)
  Sender: FDA-Public Use
  Company Number: None

PATIENT
  Sex: Male
  Weight: 106.3 kg

DRUGS (4)
  1. FLUOROURACIL [Suspect]
     Active Substance: FLUOROURACIL
     Dates: end: 20221123
  2. CAMPTOSAR [Suspect]
     Active Substance: IRINOTECAN HYDROCHLORIDE
     Dates: end: 20221121
  3. LEUCOVORIN CALCIUM [Suspect]
     Active Substance: LEUCOVORIN CALCIUM
     Dates: end: 20221121
  4. ELOXATIN [Suspect]
     Active Substance: OXALIPLATIN
     Dates: end: 20221121

REACTIONS (7)
  - Nausea [None]
  - Vomiting [None]
  - Hypophagia [None]
  - Dehydration [None]
  - Gastric disorder [None]
  - Gastrointestinal wall thickening [None]
  - Duodenal stenosis [None]

NARRATIVE: CASE EVENT DATE: 20221214
